FAERS Safety Report 8387059-4 (Version None)
Quarter: 2012Q2

REPORT INFORMATION
  Report Type: 
  Country: None (occurrence: None)
  Receive Date: 20120525
  Receipt Date: 20120518
  Transmission Date: 20120825
  Serious: Yes (Death)
  Sender: FDA-Public Use
  Company Number: US-ACTELION-A-US2012-65333

PATIENT

DRUGS (1)
  1. TRACLEER [Suspect]
     Indication: PULMONARY ARTERIAL HYPERTENSION
     Dosage: UNK
     Route: 048
     Dates: start: 20120418

REACTIONS (4)
  - DRUG DOSE OMISSION [None]
  - CARDIOGENIC SHOCK [None]
  - PULMONARY EMBOLISM [None]
  - MULTI-ORGAN FAILURE [None]
